FAERS Safety Report 5516865-6 (Version None)
Quarter: 2007Q4

REPORT INFORMATION
  Report Type: 
  Country: None (occurrence: None)
  Receive Date: 20071114
  Receipt Date: 20071101
  Transmission Date: 20080405
  Serious: Yes (Other)
  Sender: FDA-Public Use
  Company Number: FI-AMGEN-US251297

PATIENT
  Sex: Male

DRUGS (2)
  1. ENBREL [Suspect]
     Indication: SPONDYLOARTHROPATHY
     Route: 058
     Dates: start: 20041101
  2. NSAID'S [Concomitant]

REACTIONS (2)
  - EYE PAIN [None]
  - SINUS DISORDER [None]
